FAERS Safety Report 5392353-5 (Version None)
Quarter: 2007Q3

REPORT INFORMATION
  Report Type: 
  Country: None (occurrence: None)
  Receive Date: 20070720
  Receipt Date: 20070719
  Transmission Date: 20080115
  Serious: Yes (Other)
  Sender: FDA-Public Use
  Company Number: A0664808A

PATIENT
  Age: 50 Year
  Sex: Female

DRUGS (2)
  1. ALLI [Suspect]
     Indication: WEIGHT LOSS DIET
     Dates: start: 20070708, end: 20070718
  2. SYNTHROID [Concomitant]

REACTIONS (3)
  - NERVOUSNESS [None]
  - RECTAL DISCHARGE [None]
  - RECTAL HAEMORRHAGE [None]
